FAERS Safety Report 8194424-7 (Version None)
Quarter: 2012Q1

REPORT INFORMATION
  Report Type: 
  Country: None (occurrence: None)
  Receive Date: 20120308
  Receipt Date: 20120306
  Transmission Date: 20120608
  Serious: Yes (Life-Threatening)
  Sender: FDA-Public Use
  Company Number: FR-PFIZER INC-2012059609

PATIENT
  Age: 7 Year
  Sex: Female

DRUGS (3)
  1. PURINETHOL [Suspect]
     Indication: T-CELL LYMPHOMA STAGE III
     Dosage: 50 MG/M2/DAY
  2. CYCLOPHOSPHAMIDE [Concomitant]
     Indication: T-CELL LYMPHOMA STAGE III
     Dosage: 1 G/M2
  3. CYTARABINE [Suspect]
     Indication: T-CELL LYMPHOMA STAGE III
     Dosage: 75 MG/M2/DAY, FOR 4 DAYS

REACTIONS (4)
  - LEUKOPENIA [None]
  - THROMBOCYTOPENIA [None]
  - LUNG DISORDER [None]
  - NEUTROPENIA [None]
